FAERS Safety Report 9486012 (Version 1)
Quarter: 2013Q3

REPORT INFORMATION
  Report Type: Spontaneous
  Country: US (occurrence: None)
  Receive Date: 20130827
  Receipt Date: 20130827
  Transmission Date: 20140515
  Serious: Yes (Hospitalization)
  Sender: FDA-Public Use
  Company Number: None

PATIENT
  Age: 72 Year
  Sex: Female
  Weight: 80.6 kg

DRUGS (2)
  1. CARBOPLATIN [Suspect]
     Indication: CHEMOTHERAPY
     Dates: start: 20130731, end: 20130731
  2. TEMODAR [Suspect]
     Indication: CHEMOTHERAPY
     Route: 048
     Dates: start: 20130801, end: 20130805

REACTIONS (3)
  - Thrombocytopenia [None]
  - Neuropathy peripheral [None]
  - Herpes zoster [None]
